FAERS Safety Report 8521494-6 (Version None)
Quarter: 2012Q3

REPORT INFORMATION
  Report Type: 
  Country: None (occurrence: None)
  Receive Date: 20120719
  Receipt Date: 20120710
  Transmission Date: 20120928
  Serious: Yes (Other)
  Sender: FDA-Public Use
  Company Number: US-ASTRAZENECA-2012SE19171

PATIENT
  Age: 80 Year
  Sex: Male

DRUGS (3)
  1. NEXIUM [Suspect]
     Indication: GASTROOESOPHAGEAL REFLUX DISEASE
     Route: 048
  2. CRESTOR [Suspect]
     Route: 048
  3. CRESTOR [Suspect]
     Dosage: EVERY DAY
     Route: 048

REACTIONS (4)
  - NEOPLASM MALIGNANT [None]
  - MEMORY IMPAIRMENT [None]
  - ABASIA [None]
  - LOSS OF CONSCIOUSNESS [None]
